FAERS Safety Report 11195601 (Version 1)
Quarter: 2015Q2

REPORT INFORMATION
  Report Type: Spontaneous
  Country: US (occurrence: None)
  Receive Date: 20150615
  Receipt Date: 20150615
  Transmission Date: 20150821
  Serious: Yes (Disabling, Other)
  Sender: FDA-Public Use
  Company Number: None

PATIENT
  Age: 68 Year
  Sex: Female
  Weight: 48.08 kg

DRUGS (18)
  1. COLESTID [Concomitant]
     Active Substance: COLESTIPOL HYDROCHLORIDE
  2. VITAMIN E [Concomitant]
     Active Substance: .ALPHA.-TOCOPHEROL
  3. CALCIUM W/D [Concomitant]
  4. MULTI-VITAMIN [Concomitant]
     Active Substance: .ALPHA.-TOCOPHEROL ACETATE, DL-\ASCORBIC ACID\CYANOCOBALAMIN\FLUORIDE ION\FOLIC ACID\NIACIN\PYRIDOXINE\RIBOFLAVIN\THIAMINE\VITAMIN A\VITAMIN D
  5. ASPIRIN. [Concomitant]
     Active Substance: ASPIRIN
  6. VITAMIN C [Concomitant]
     Active Substance: ASCORBIC ACID
  7. ZANTAC [Concomitant]
     Active Substance: RANITIDINE HYDROCHLORIDE
  8. ALENDRONIC SODIUIM 70 MG TEVA PHARMACEUTICALS [Suspect]
     Active Substance: ALENDRONIC ACID
     Indication: OSTEOPOROSIS
     Dosage: TAKEN  BY MOUTH
     Dates: start: 20150314, end: 20150606
  9. ZETIA [Concomitant]
     Active Substance: EZETIMIBE
  10. ICD [Concomitant]
  11. VAGIFEM [Concomitant]
     Active Substance: ESTRADIOL
  12. NIACIN. [Concomitant]
     Active Substance: NIACIN
  13. VITAMIN D3 [Concomitant]
     Active Substance: CHOLECALCIFEROL
  14. TURMERIC OMEGA 3 [Concomitant]
  15. LIPITOR [Concomitant]
     Active Substance: ATORVASTATIN CALCIUM
  16. VITAMIN B [Concomitant]
     Active Substance: VITAMIN B
  17. VITAMIN K2 [Concomitant]
     Active Substance: MENAQUINONE 6
  18. MAGNESIUM [Concomitant]
     Active Substance: MAGNESIUM

REACTIONS (8)
  - Arthralgia [None]
  - Mobility decreased [None]
  - Gastrooesophageal reflux disease [None]
  - Fatigue [None]
  - Pain [None]
  - Bone pain [None]
  - Insomnia [None]
  - Myalgia [None]
